FAERS Safety Report 8114682-4 (Version None)
Quarter: 2012Q1

REPORT INFORMATION
  Report Type: 
  Country: None (occurrence: None)
  Receive Date: 20120206
  Receipt Date: 20120201
  Transmission Date: 20120608
  Serious: Yes (Other)
  Sender: FDA-Public Use
  Company Number: US-TEVA-320569USA

PATIENT
  Sex: Female
  Weight: 45.4 kg

DRUGS (1)
  1. PARAGARD T 380A [Suspect]
     Indication: CONTRACEPTION
     Route: 015
     Dates: start: 20120131, end: 20120131

REACTIONS (5)
  - DYSKINESIA [None]
  - CONVULSION [None]
  - COLD SWEAT [None]
  - PALLOR [None]
  - DEVICE EXPULSION [None]
